FAERS Safety Report 7257939-1 (Version None)
Quarter: 2011Q1

REPORT INFORMATION
  Report Type: 
  Country: None (occurrence: None)
  Receive Date: 20110129
  Receipt Date: 20100609
  Transmission Date: 20110831
  Serious: No
  Sender: FDA-Public Use
  Company Number: US-ABBOTT-10P-163-0650408-00

PATIENT
  Sex: Male

DRUGS (4)
  1. IRON [Concomitant]
     Indication: COLITIS ULCERATIVE
  2. HUMIRA [Suspect]
     Indication: COLITIS ULCERATIVE
     Dates: start: 20100422
  3. MULTIVITAMIN [Concomitant]
     Indication: COLITIS ULCERATIVE
  4. SULFASALAZINE [Concomitant]
     Indication: COLITIS ULCERATIVE

REACTIONS (1)
  - PAIN IN EXTREMITY [None]
